FAERS Safety Report 21227719 (Version 2)
Quarter: 2022Q4

REPORT INFORMATION
  Report Type: Spontaneous
  Country: JP (occurrence: JP)
  Receive Date: 20220818
  Receipt Date: 20221005
  Transmission Date: 20230112
  Serious: No
  Sender: FDA-Public Use
  Company Number: JP-GSKNCCC-Case-01553959_AE-61198

PATIENT

DRUGS (2)
  1. SERETIDE [Suspect]
     Active Substance: FLUTICASONE PROPIONATE\SALMETEROL XINAFOATE
     Indication: Asthma
     Dosage: USING WHEN HAVING SYMPTOMS
     Route: 055
  2. SERETIDE [Suspect]
     Active Substance: FLUTICASONE PROPIONATE\SALMETEROL XINAFOATE
     Dosage: UNK, BID, 2 INHALATIONS/DOSE
     Route: 055

REACTIONS (3)
  - Pharyngeal neoplasm [Unknown]
  - Product use issue [Unknown]
  - Intercepted product prescribing error [Unknown]
